FAERS Safety Report 5638456-9 (Version None)
Quarter: 2008Q1

REPORT INFORMATION
  Report Type: 
  Country: None (occurrence: None)
  Receive Date: 20080226
  Receipt Date: 20080219
  Transmission Date: 20080703
  Serious: Yes (Hospitalization)
  Sender: FDA-Public Use
  Company Number: GB-BRISTOL-MYERS SQUIBB COMPANY-14011092

PATIENT
  Age: 54 Year
  Sex: Female

DRUGS (3)
  1. CETUXIMAB [Suspect]
     Indication: RECTAL CANCER
     Dosage: FIRST INFUSION 400 MG/M2(11JUN07), LATER 250 MG/M2 ONCE WEEKLY(18JUN07).
     Route: 042
     Dates: start: 20070618
  2. OXALIPLATIN [Suspect]
     Indication: RECTAL CANCER
     Route: 042
     Dates: start: 20070611
  3. CAPECITABINE [Suspect]
     Indication: RECTAL CANCER
     Route: 048
     Dates: start: 20070611

REACTIONS (4)
  - DIARRHOEA [None]
  - HAEMOGLOBIN [None]
  - HYPOALBUMINAEMIA [None]
  - LEUKOPENIA [None]
